FAERS Safety Report 5290495-6 (Version None)
Quarter: 2007Q2

REPORT INFORMATION
  Report Type: 
  Country: None (occurrence: None)
  Receive Date: 20070404
  Receipt Date: 20070404
  Transmission Date: 20071010
  Serious: No
  Sender: FDA-Public Use
  Company Number: None

PATIENT
  Age: 26 Year
  Sex: Male

DRUGS (2)
  1. AVINZA (MORPHINE SULPHATE) [Suspect]
     Dosage: CAPSULE, EXTENDED RELEASE  VIAL 13 DRAM
  2. FIRST DATABANK ALLERGY MODULE [Suspect]

REACTIONS (1)
  - MEDICATION ERROR [None]
